FAERS Safety Report 8607965-2 (Version None)
Quarter: 2012Q3

REPORT INFORMATION
  Report Type: 
  Country: None (occurrence: None)
  Receive Date: 20120821
  Receipt Date: 20120814
  Transmission Date: 20120928
  Serious: Yes (Other)
  Sender: FDA-Public Use
  Company Number: US-PFIZER INC-2012199407

PATIENT
  Age: 93 Year
  Sex: Male
  Weight: 54.422 kg

DRUGS (9)
  1. AMLODIPINE [Concomitant]
     Indication: HYPERTENSION
     Dosage: 5 MG, DAILY
  2. GABAPENTIN [Concomitant]
     Dosage: 300 MG, 2X/DAY
  3. DILTIAZEM [Concomitant]
     Dosage: UNK, DAILY
  4. DELSYM [Suspect]
     Indication: COUGH
     Dosage: UNK, AS NEEDED
     Dates: end: 20120501
  5. FINASTERIDE [Concomitant]
     Dosage: 5 MG, DAILY
  6. ASPIRIN [Concomitant]
     Dosage: UNK, DAILY
  7. ROBITUSSIN COUGH AND CHEST CONGESTION DM [Suspect]
     Indication: COUGH
     Dosage: UNK, AS NEEDED
     Route: 048
     Dates: start: 20120601
  8. COLACE [Concomitant]
     Indication: FAECES HARD
     Dosage: UNK, 2X/DAY
  9. CYMBALTA [Concomitant]
     Dosage: 50 MG, DAILY

REACTIONS (3)
  - HALLUCINATION [None]
  - SOMNOLENCE [None]
  - ABNORMAL DREAMS [None]
